FAERS Safety Report 21353533 (Version 8)
Quarter: 2024Q1

REPORT INFORMATION
  Report Type: Spontaneous
  Country: US (occurrence: US)
  Receive Date: 20220920
  Receipt Date: 20240226
  Transmission Date: 20240410
  Serious: Yes (Hospitalization, Other)
  Sender: FDA-Public Use
  Company Number: US-SA-SAC20220919000970

PATIENT
  Age: 18 Year
  Sex: Male

DRUGS (18)
  1. ALPROLIX [Suspect]
     Active Substance: EFTRENONACOG ALFA
     Indication: Factor IX deficiency
     Dosage: 3700 IU, QW, (3300-4070) SLOW IV PUSH WEEKLY AS NEEDED FOR PROPHYLAXIS
     Route: 042
  2. ALPROLIX [Suspect]
     Active Substance: EFTRENONACOG ALFA
     Indication: Factor IX deficiency
     Dosage: 3700 IU, QW, (3300-4070) SLOW IV PUSH WEEKLY AS NEEDED FOR PROPHYLAXIS
     Route: 042
  3. ALPROLIX [Suspect]
     Active Substance: EFTRENONACOG ALFA
     Dosage: 3700 UNITS (3330-4070) SLOW IV PUSH EVERY 24 HOURS AS NEEDED FOR BLEEDING
     Route: 042
  4. ALPROLIX [Suspect]
     Active Substance: EFTRENONACOG ALFA
     Dosage: 3700 UNITS (3330-4070) SLOW IV PUSH EVERY 24 HOURS AS NEEDED FOR BLEEDING
     Route: 042
  5. ALPROLIX [Suspect]
     Active Substance: EFTRENONACOG ALFA
     Dosage: 3700 IU, PRN
     Route: 042
  6. ALPROLIX [Suspect]
     Active Substance: EFTRENONACOG ALFA
     Dosage: 3700 IU, PRN
     Route: 042
  7. ALPROLIX [Suspect]
     Active Substance: EFTRENONACOG ALFA
     Dosage: 4296 U, Q4D
     Route: 042
     Dates: start: 20220913
  8. ALPROLIX [Suspect]
     Active Substance: EFTRENONACOG ALFA
     Dosage: 4296 U, Q4D
     Route: 042
     Dates: start: 20220913
  9. ALPROLIX [Suspect]
     Active Substance: EFTRENONACOG ALFA
     Dosage: 250 U
     Route: 042
     Dates: start: 202209
  10. ALPROLIX [Suspect]
     Active Substance: EFTRENONACOG ALFA
     Dosage: 250 U
     Route: 042
     Dates: start: 202209
  11. ALPROLIX [Suspect]
     Active Substance: EFTRENONACOG ALFA
     Dosage: 4000 U
     Route: 042
     Dates: start: 202209
  12. ALPROLIX [Suspect]
     Active Substance: EFTRENONACOG ALFA
     Dosage: 4000 U
     Route: 042
     Dates: start: 202209
  13. ALPROLIX [Suspect]
     Active Substance: EFTRENONACOG ALFA
     Dosage: 2800 U (2520-3080), QD
     Route: 042
  14. ALPROLIX [Suspect]
     Active Substance: EFTRENONACOG ALFA
     Dosage: 2800 U (2520-3080), QD
     Route: 042
  15. ALPROLIX [Suspect]
     Active Substance: EFTRENONACOG ALFA
     Dosage: 5000 U, (4500-5500) QW AS PROPHYLAXIS
     Route: 042
  16. ALPROLIX [Suspect]
     Active Substance: EFTRENONACOG ALFA
     Dosage: 5000 U, (4500-5500) QW AS PROPHYLAXIS
     Route: 042
  17. ALPROLIX [Suspect]
     Active Substance: EFTRENONACOG ALFA
     Dosage: 2500 U (2250-2750), EVERY 24 HOURS AS NEEDED FOR BLEEDING
     Route: 042
  18. ALPROLIX [Suspect]
     Active Substance: EFTRENONACOG ALFA
     Dosage: 2500 U (2250-2750), EVERY 24 HOURS AS NEEDED FOR BLEEDING
     Route: 042

REACTIONS (8)
  - Haemorrhage [Unknown]
  - Musculoskeletal discomfort [Unknown]
  - Arthralgia [Unknown]
  - Haemorrhage [Recovering/Resolving]
  - Haemorrhage [Unknown]
  - Haemorrhage [Unknown]
  - Haemorrhage [Unknown]
  - Treatment noncompliance [Unknown]

NARRATIVE: CASE EVENT DATE: 20220101
